FAERS Safety Report 4815619-3 (Version None)
Quarter: 2005Q4

REPORT INFORMATION
  Report Type: 
  Country: None (occurrence: None)
  Receive Date: 20051027
  Receipt Date: 20051014
  Transmission Date: 20060501
  Serious: Yes (Hospitalization, Other)
  Sender: FDA-Public Use
  Company Number: 2005144213

PATIENT
  Age: 3 Year
  Sex: Female

DRUGS (1)
  1. ZYVOX [Suspect]
     Indication: MYCOBACTERIAL INFECTION
     Dosage: 600 MG (300 MG, 1 IN 2 D), INTRAVENOUS
     Route: 042
     Dates: start: 20041119, end: 20050401

REACTIONS (8)
  - ANAEMIA [None]
  - BONE MARROW TOXICITY [None]
  - CARDIAC FAILURE [None]
  - LEUKOCYTOSIS [None]
  - METABOLIC ACIDOSIS [None]
  - PERICARDIAL EFFUSION [None]
  - THROMBOCYTOPENIA [None]
  - WHITE BLOOD CELL COUNT DECREASED [None]
